FAERS Safety Report 7269436-8 (Version None)
Quarter: 2011Q1

REPORT INFORMATION
  Report Type: 
  Country: None (occurrence: None)
  Receive Date: 20110202
  Receipt Date: 20110127
  Transmission Date: 20110831
  Serious: No
  Sender: FDA-Public Use
  Company Number: US-TEVA-265474USA

PATIENT

DRUGS (2)
  1. AZILECT [Suspect]
     Indication: PARKINSON'S DISEASE
     Route: 048
  2. PRAMIPEXOLE DIHYDROCHLORIDE [Suspect]

REACTIONS (1)
  - IMPULSE-CONTROL DISORDER [None]
